FAERS Safety Report 10617994 (Version 2)
Quarter: 2015Q1

REPORT INFORMATION
  Report Type: Spontaneous
  Country: US (occurrence: US)
  Receive Date: 20141201
  Receipt Date: 20150105
  Transmission Date: 20150720
  Serious: No
  Sender: FDA-Public Use
  Company Number: US-009507513-1411USA004187

PATIENT
  Age: 31 Year
  Sex: Female
  Weight: 63.49 kg

DRUGS (1)
  1. NEXPLANON [Suspect]
     Active Substance: ETONOGESTREL
     Dosage: DOSE/FREQUENCY-1 ROD
     Route: 059
     Dates: start: 20141031

REACTIONS (3)
  - Swelling [Unknown]
  - Implant site erythema [Not Recovered/Not Resolved]
  - Implant site cellulitis [Not Recovered/Not Resolved]

NARRATIVE: CASE EVENT DATE: 2014
